FAERS Safety Report 11889605 (Version 3)
Quarter: 2016Q1

REPORT INFORMATION
  Report Type: Spontaneous
  Country: US (occurrence: US)
  Receive Date: 20160105
  Receipt Date: 20160118
  Transmission Date: 20160526
  Serious: Yes (Death, Other)
  Sender: FDA-Public Use
  Company Number: US-BAYER-2016-001660

PATIENT
  Sex: Male

DRUGS (2)
  1. BAYER ASPIRIN REGIMEN REGULAR 325 MG STRENGTH [Suspect]
     Active Substance: ASPIRIN
     Indication: HEADACHE
     Dosage: UP TO 6 TABLETS PER DAY
     Route: 048
  2. BAYER LOW DOSE [Suspect]
     Active Substance: ASPIRIN

REACTIONS (7)
  - Cardiovascular disorder [None]
  - Product use issue [None]
  - Cardiac disorder [None]
  - Myocardial infarction [Fatal]
  - Arterial disorder [Fatal]
  - Dementia Alzheimer^s type [None]
  - Pneumonia [None]
